FAERS Safety Report 5058714-9 (Version None)
Quarter: 2006Q3

REPORT INFORMATION
  Report Type: 
  Country: None (occurrence: None)
  Receive Date: 20060721
  Receipt Date: 20051004
  Transmission Date: 20061208
  Serious: No
  Sender: FDA-Public Use
  Company Number: US-AMGEN-US153013

PATIENT
  Sex: Female
  Weight: 49.9 kg

DRUGS (2)
  1. EPOGEN [Suspect]
     Indication: DIALYSIS
     Route: 058
     Dates: end: 20050930
  2. MEDICINALPRODUCT NOT SPECIFIED BY SENDER [Concomitant]
     Route: 065
     Dates: start: 19850101

REACTIONS (3)
  - CHILLS [None]
  - MENORRHAGIA [None]
  - PYREXIA [None]
